FAERS Safety Report 9806885 (Version 2)
Quarter: 2014Q3

REPORT INFORMATION
  Report Type: Spontaneous
  Country: US (occurrence: US)
  Receive Date: 20140109
  Receipt Date: 20140801
  Transmission Date: 20150326
  Serious: No
  Sender: FDA-Public Use
  Company Number: US-009507513-1401USA003375

PATIENT
  Sex: Female

DRUGS (1)
  1. NUVARING [Suspect]
     Active Substance: ETHINYL ESTRADIOL\ETONOGESTREL
     Dosage: UNK
     Route: 067
     Dates: start: 20070425, end: 20130624

REACTIONS (6)
  - Thrombophlebitis superficial [Unknown]
  - Varicose vein operation [Unknown]
  - Blood cholesterol increased [Unknown]
  - Deep vein thrombosis [Unknown]
  - Platelet count increased [Unknown]
  - Gallbladder operation [Unknown]

NARRATIVE: CASE EVENT DATE: 2007
